FAERS Safety Report 6553030-8 (Version None)
Quarter: 2010Q1

REPORT INFORMATION
  Report Type: 
  Country: None (occurrence: None)
  Receive Date: 20100122
  Receipt Date: 20100106
  Transmission Date: 20100710
  Serious: Yes (Death)
  Sender: FDA-Public Use
  Company Number: 2010AC000028

PATIENT
  Age: 79 Year
  Sex: Male
  Weight: 74.8435 kg

DRUGS (1)
  1. DIGOXIN [Suspect]
     Dosage: 0.25 MG; QD; PO
     Route: 048

REACTIONS (6)
  - CARDIAC ARREST [None]
  - ECONOMIC PROBLEM [None]
  - INJURY [None]
  - SURGERY [None]
  - UNEVALUABLE EVENT [None]
  - VENTRICULAR ARRHYTHMIA [None]
